FAERS Safety Report 10452979 (Version 1)
Quarter: 2014Q3

REPORT INFORMATION
  Report Type: Spontaneous
  Country: JP (occurrence: JP)
  Receive Date: 20140915
  Receipt Date: 20140915
  Transmission Date: 20150326
  Serious: Yes (Other)
  Sender: FDA-Public Use
  Company Number: JP-009507513-1409JPN006661

PATIENT

DRUGS (4)
  1. AVASTIN [Suspect]
     Active Substance: BEVACIZUMAB
     Dosage: UNK
     Route: 042
  2. TEMODAL [Suspect]
     Active Substance: TEMOZOLOMIDE
     Dosage: 200 MG, UNK
     Route: 048
  3. TEMODAL [Suspect]
     Active Substance: TEMOZOLOMIDE
     Dosage: 200 UNK, UNK
     Route: 048
  4. AVASTIN [Suspect]
     Active Substance: BEVACIZUMAB
     Route: 042

REACTIONS (3)
  - Cerebral haemorrhage [Unknown]
  - Nausea [Unknown]
  - Vomiting [Unknown]
